FAERS Safety Report 4627344-2 (Version None)
Quarter: 2005Q1

REPORT INFORMATION
  Report Type: 
  Country: None (occurrence: None)
  Receive Date: 20050331
  Receipt Date: 20050315
  Transmission Date: 20050727
  Serious: Yes (Death)
  Sender: FDA-Public Use
  Company Number: S05-SWE-01177-01

PATIENT
  Age: 60 Year
  Sex: Male

DRUGS (12)
  1. CITALOPRAM HYDROBROMIDE [Suspect]
     Indication: DEPRESSION
     Dosage: 20 MG QD; PO
     Route: 048
  2. VOLTAREN [Suspect]
     Dosage: 50 MG TID; PO
     Route: 048
     Dates: start: 20040501, end: 20041215
  3. ASPIRIN [Suspect]
     Indication: CEREBRAL THROMBOSIS
     Dosage: 75 MG QD; PO
     Route: 048
     Dates: start: 19900101, end: 20041215
  4. ASPIRIN [Suspect]
     Indication: CEREBROVASCULAR ACCIDENT
     Dosage: 75 MG QD; PO
     Route: 048
     Dates: start: 19900101, end: 20041215
  5. NEURONTIN [Concomitant]
  6. SELOKEN ZOC (METOPROLOL SUCCINATE) [Concomitant]
  7. RAMIPRIL [Concomitant]
  8. SALURES-K [Concomitant]
  9. SUSCARD (GLYCERYL TRINITRATE) [Concomitant]
  10. ZOCORD (SIMVASTATIN) [Concomitant]
  11. NORVASC [Concomitant]
  12. IMDUR [Concomitant]

REACTIONS (7)
  - ARTERIOSCLEROSIS [None]
  - CEREBRAL HAEMORRHAGE [None]
  - CHEST PAIN [None]
  - DRUG INTERACTION [None]
  - DUODENAL ULCER PERFORATION [None]
  - GASTROINTESTINAL HAEMORRHAGE [None]
  - POOR PERIPHERAL CIRCULATION [None]
